FAERS Safety Report 10404178 (Version 1)
Quarter: 2014Q1

REPORT INFORMATION
  Report Type: Spontaneous
  Country: US (occurrence: None)
  Receive Date: 20131226
  Receipt Date: 20131226
  Transmission Date: 20141002
  Serious: Yes (Other)
  Sender: FDA-Public Use
  Company Number: PHEH2012US018352

PATIENT
  Age: 58 Year
  Sex: Female

DRUGS (1)
  1. ZOMETA (ZOLEDRONATE) SOLUTION FOR INJECTION [Suspect]
     Indication: NEOPLASM MALIGNANT
     Dosage: EVERY 3 MONTHS, IV INFUSION

REACTIONS (4)
  - Pyrexia [None]
  - Periorbital oedema [None]
  - Ocular hyperaemia [None]
  - Eye pruritus [None]
